FAERS Safety Report 9342190 (Version 1)
Quarter: 2013Q2

REPORT INFORMATION
  Report Type: Spontaneous
  Country: US (occurrence: US)
  Receive Date: 20130611
  Receipt Date: 20130611
  Transmission Date: 20140414
  Serious: No
  Sender: FDA-Public Use
  Company Number: US-BAYER-2013-069824

PATIENT
  Age: 87 Year
  Sex: Female
  Weight: 63.49 kg

DRUGS (4)
  1. BAYER EXTRA STRENGTH ASPIRIN [Suspect]
     Indication: ANALGESIC THERAPY
     Dosage: 1 DF, BID
     Route: 048
     Dates: start: 201303
  2. ALEVE CAPLET [Suspect]
     Indication: ARTHRITIS
     Dosage: 2 DF, BID
     Route: 048
  3. SYNTHROID [Concomitant]
  4. BAYER ASPIRIN REGIMEN ADULT LOW STRENGTH [Concomitant]

REACTIONS (2)
  - Incorrect drug administration duration [None]
  - Incorrect dose administered [None]
